FAERS Safety Report 9632626 (Version 2)
Quarter: 2014Q2

REPORT INFORMATION
  Report Type: Spontaneous
  Country: US (occurrence: US)
  Receive Date: 20131018
  Receipt Date: 20140422
  Transmission Date: 20141212
  Serious: Yes (Death)
  Sender: FDA-Public Use
  Company Number: US-GLAXOSMITHKLINE-A1045828A

PATIENT
  Age: 76 Year
  Sex: Female

DRUGS (5)
  1. VOTRIENT [Suspect]
     Indication: SOFT TISSUE SARCOMA
     Dosage: 400MG TWICE PER DAY
     Route: 048
     Dates: start: 20130828
  2. ZANTAC [Concomitant]
  3. AMLODIPINE [Concomitant]
  4. IBUPROFEN [Concomitant]
  5. UNKNOWN [Concomitant]

REACTIONS (2)
  - Tumour excision [Unknown]
  - Death [Fatal]
